FAERS Safety Report 10399313 (Version 1)
Quarter: 2014Q3

REPORT INFORMATION
  Report Type: Spontaneous
  Country: FR (occurrence: None)
  Receive Date: 20140819
  Receipt Date: 20140819
  Transmission Date: 20150326
  Serious: Yes (Hospitalization)
  Sender: FDA-Public Use
  Company Number: AUR-APL-2014-08468

PATIENT
  Age: 48 Year
  Sex: Male

DRUGS (4)
  1. CLARADOL CAFEINE [Suspect]
     Active Substance: ACETAMINOPHEN\CAFFEINE
     Indication: BACK PAIN
  2. PARACETAMOL+CODEINE [Suspect]
     Active Substance: ACETAMINOPHEN\CODEINE PHOSPHATE
     Indication: BACK PAIN
     Route: 048
     Dates: start: 20140702, end: 20140702
  3. PREDNISONE (PREDNISONE) [Concomitant]
     Active Substance: PREDNISONE
  4. PANTOPRAZOLE (PANTOPRAZOLE) [Concomitant]
     Active Substance: PANTOPRAZOLE SODIUM

REACTIONS (4)
  - Abdominal pain upper [None]
  - Biliary colic [None]
  - Chest discomfort [None]
  - Pancreatitis acute [None]

NARRATIVE: CASE EVENT DATE: 20140702
